APPROVED DRUG PRODUCT: PLENVU
Active Ingredient: ASCORBIC ACID; POLYETHYLENE GLYCOL 3350; POTASSIUM CHLORIDE; SODIUM ASCORBATE; SODIUM CHLORIDE; SODIUM SULFATE
Strength: 7.54GM;140GM;2.2GM;48.11GM;5.2GM;9GM
Dosage Form/Route: FOR SOLUTION;ORAL
Application: N209381 | Product #001
Applicant: SALIX PHARMACEUTICALS INC
Approved: May 4, 2018 | RLD: Yes | RS: Yes | Type: RX

PATENTS:
Patent 9326969 | Expires: Sep 10, 2033
Patent 9592252 | Expires: Aug 11, 2032
Patent 11529368 | Expires: Mar 9, 2032
Patent 10792306 | Expires: Mar 9, 2032
Patent 10918723 | Expires: Sep 10, 2033
Patent 12083179 | Expires: Sep 10, 2033
Patent 10780112 | Expires: Mar 9, 2032
Patent 10016504 | Expires: Sep 10, 2033
Patent 10646512 | Expires: Mar 25, 2032
Patent 9707297 | Expires: Sep 10, 2033
Patent 8999313 | Expires: Sep 10, 2033